FAERS Safety Report 5994061-6 (Version None)
Quarter: 2008Q4

REPORT INFORMATION
  Report Type: 
  Country: None (occurrence: None)
  Receive Date: 20081212
  Receipt Date: 20081020
  Transmission Date: 20090506
  Serious: Yes (Other)
  Sender: FDA-Public Use
  Company Number: US-ABBOTT-08P-163-0473372-00

PATIENT
  Sex: Male
  Weight: 103.51 kg

DRUGS (4)
  1. HUMIRA [Suspect]
     Indication: RHEUMATOID ARTHRITIS
     Route: 058
     Dates: start: 20080301, end: 20080701
  2. HUMIRA [Suspect]
     Route: 058
     Dates: start: 20080701, end: 20080901
  3. VICODIN [Concomitant]
     Indication: PAIN
     Route: 048
  4. PREDNISONE TAB [Concomitant]
     Indication: RHEUMATOID ARTHRITIS
     Route: 048

REACTIONS (3)
  - DRUG INEFFECTIVE [None]
  - HODGKIN'S DISEASE [None]
  - INJECTION SITE RASH [None]
